FAERS Safety Report 17437150 (Version 11)
Quarter: 2024Q3

REPORT INFORMATION
  Report Type: Spontaneous
  Country: FR (occurrence: FR)
  Receive Date: 20200219
  Receipt Date: 20240908
  Transmission Date: 20241017
  Serious: Yes (Other)
  Sender: NOVARTIS
  Company Number: NVSC2020FR043746

PATIENT
  Age: 9 Year
  Sex: Male

DRUGS (87)
  1. BASILIXIMAB [Suspect]
     Active Substance: BASILIXIMAB
     Indication: Chronic graft versus host disease in intestine
     Dosage: UNK, UNKNOWN FREQ.
     Route: 065
  2. BASILIXIMAB [Suspect]
     Active Substance: BASILIXIMAB
     Indication: Immunosuppressant drug therapy
  3. BASILIXIMAB [Suspect]
     Active Substance: BASILIXIMAB
     Indication: Graft versus host disease in lung
  4. BASILIXIMAB [Suspect]
     Active Substance: BASILIXIMAB
     Indication: Chronic graft versus host disease in skin
  5. BASILIXIMAB [Suspect]
     Active Substance: BASILIXIMAB
     Indication: Immunosuppression
  6. CYCLOSPORINE [Suspect]
     Active Substance: CYCLOSPORINE
     Indication: Graft versus host disease
     Dosage: UNK
     Route: 065
  7. MYCOPHENOLATE MOFETIL [Suspect]
     Active Substance: MYCOPHENOLATE MOFETIL
     Indication: Acute graft versus host disease in skin
     Dosage: UNK
     Route: 065
  8. MYCOPHENOLATE MOFETIL [Suspect]
     Active Substance: MYCOPHENOLATE MOFETIL
     Indication: Acute graft versus host disease in intestine
  9. MYCOPHENOLATE MOFETIL [Suspect]
     Active Substance: MYCOPHENOLATE MOFETIL
     Indication: Immunosuppressant drug therapy
  10. RITUXIMAB [Suspect]
     Active Substance: RITUXIMAB
     Indication: Chronic graft versus host disease
     Dosage: UNK
     Route: 065
  11. RITUXIMAB [Suspect]
     Active Substance: RITUXIMAB
     Indication: Immunosuppressant drug therapy
  12. RITUXIMAB [Suspect]
     Active Substance: RITUXIMAB
     Indication: Chronic graft versus host disease in intestine
  13. RITUXIMAB [Suspect]
     Active Substance: RITUXIMAB
     Indication: Graft versus host disease in lung
  14. FLUDARABINE PHOSPHATE [Suspect]
     Active Substance: FLUDARABINE PHOSPHATE
     Indication: Acute myeloid leukaemia
     Dosage: 30 MG/M2, QD, FROM D2 TO D6
     Route: 065
  15. IDARUBICIN [Suspect]
     Active Substance: IDARUBICIN
     Indication: Acute myeloid leukaemia
     Dosage: 8 MG/M2, QD (1/DAY), D2, D4, J6
     Route: 065
  16. ETOPOSIDE [Suspect]
     Active Substance: ETOPOSIDE
     Indication: Acute myeloid leukaemia
     Dosage: 100 MG/M2, QD (1/DAY)
     Route: 065
  17. AMOXICILLIN [Suspect]
     Active Substance: AMOXICILLIN
     Indication: Antibiotic prophylaxis
     Dosage: UNK
     Route: 065
  18. METHOTREXATE [Suspect]
     Active Substance: METHOTREXATE
     Indication: Graft versus host disease
     Dosage: UNK
     Route: 042
  19. METHOTREXATE [Suspect]
     Active Substance: METHOTREXATE
     Indication: Prophylaxis against graft versus host disease
  20. INFLIXIMAB [Suspect]
     Active Substance: INFLIXIMAB
     Indication: Chronic graft versus host disease
     Dosage: UNK
     Route: 065
  21. INFLIXIMAB [Suspect]
     Active Substance: INFLIXIMAB
     Indication: Immunosuppressant drug therapy
  22. INFLIXIMAB [Suspect]
     Active Substance: INFLIXIMAB
     Indication: Graft versus host disease in lung
  23. INFLIXIMAB [Suspect]
     Active Substance: INFLIXIMAB
     Indication: Chronic graft versus host disease in skin
  24. INFLIXIMAB [Suspect]
     Active Substance: INFLIXIMAB
     Indication: Chronic graft versus host disease in intestine
  25. INFLIXIMAB [Suspect]
     Active Substance: INFLIXIMAB
     Indication: Immunosuppression
  26. CYCLOPHOSPHAMIDE [Suspect]
     Active Substance: CYCLOPHOSPHAMIDE
     Indication: Bone marrow conditioning regimen
     Dosage: 200 MG/KG (50 MILLIGRAM/KILOGRAM, QID)
     Route: 065
  27. CYCLOPHOSPHAMIDE [Suspect]
     Active Substance: CYCLOPHOSPHAMIDE
     Indication: Product used for unknown indication
     Dosage: 50MG/KG,1 TIMES IN
     Route: 065
  28. ASPARAGINASE [Suspect]
     Active Substance: ASPARAGINASE
     Indication: Acute myeloid leukaemia
     Dosage: UNK, QD
     Route: 065
  29. BUSULFAN [Suspect]
     Active Substance: BUSULFAN
     Indication: Product used for unknown indication
     Dosage: 1.2 MG/KG, 4X PER DAY
     Route: 065
  30. BUSULFAN [Suspect]
     Active Substance: BUSULFAN
     Dosage: 4.8 MG/KG (1.2 MILLIGRAM/KILOGRAM, QID)
     Route: 065
  31. TACROLIMUS [Suspect]
     Active Substance: TACROLIMUS
     Indication: Immunosuppression
     Dosage: UNK
     Route: 065
  32. THYMOGLOBULIN [Suspect]
     Active Substance: LAPINE T-LYMPHOCYTE IMMUNE GLOBULIN
     Indication: Graft versus host disease
     Dosage: UNK
     Route: 065
  33. THYMOGLOBULIN [Suspect]
     Active Substance: LAPINE T-LYMPHOCYTE IMMUNE GLOBULIN
     Indication: Prophylaxis against graft versus host disease
  34. CYTARABINE [Suspect]
     Active Substance: CYTARABINE
     Indication: Acute myeloid leukaemia
     Dosage: 2 MG/M2, QD
     Route: 065
  35. CYTARABINE [Suspect]
     Active Substance: CYTARABINE
     Indication: Chemotherapy
     Dosage: 200 MG/M2
     Route: 065
  36. CYTARABINE [Suspect]
     Active Substance: CYTARABINE
     Dosage: 3 UNK, BID
     Route: 065
  37. CYTARABINE [Suspect]
     Active Substance: CYTARABINE
     Dosage: 200 MG/M2/DAY, CYCLIC
     Route: 065
  38. CYTARABINE [Suspect]
     Active Substance: CYTARABINE
     Dosage: 200 MG/M2/DAY, CYCLIC
     Route: 065
  39. CYTARABINE [Suspect]
     Active Substance: CYTARABINE
     Dosage: 200 MG/M2/DAY, CYCLIC
     Route: 065
  40. CYTARABINE [Suspect]
     Active Substance: CYTARABINE
     Dosage: UNK, CYCLIC
     Route: 065
  41. CYTARABINE [Suspect]
     Active Substance: CYTARABINE
     Dosage: 200 MG/M2/DAY, CYCLIC
     Route: 065
  42. CYTARABINE [Suspect]
     Active Substance: CYTARABINE
     Dosage: 3 G/M2, BID (2/DAY)
     Route: 065
  43. CYTARABINE [Suspect]
     Active Substance: CYTARABINE
     Dosage: 3 G/M2X2/DAY, CYCLIC, ON D1, D2, D8, D9
     Route: 065
  44. CYTARABINE [Suspect]
     Active Substance: CYTARABINE
     Dosage: 2 G/M2/DAY, CYCLIC, ON D2 TO D6
     Route: 065
  45. CYTARABINE [Suspect]
     Active Substance: CYTARABINE
     Dosage: 3 G/M2X2/DAY, CYCLIC, ON D1, D2, D8, D9
     Route: 065
  46. CYTARABINE [Suspect]
     Active Substance: CYTARABINE
     Dosage: 2 G/M2, QD (1/DAY) FROM D2 TO D6
     Route: 065
  47. CYTARABINE [Suspect]
     Active Substance: CYTARABINE
     Dosage: 2 G/M2, QD (1/DAY) FROM D2 TO D6
     Route: 065
  48. CYTARABINE [Suspect]
     Active Substance: CYTARABINE
     Dosage: 200 MG/M2, QD (1/DAY)
     Route: 065
  49. CYTARABINE [Suspect]
     Active Substance: CYTARABINE
     Dosage: 3 G/M2, BID (2/DAY) AT D1, D2, D8, D9
     Route: 065
  50. CYTARABINE [Suspect]
     Active Substance: CYTARABINE
     Dosage: 3 G/M2, BID (2/DAY)
     Route: 065
  51. CYTARABINE [Suspect]
     Active Substance: CYTARABINE
     Dosage: 200 MG/M2, QD (1/DAY)
     Route: 065
  52. CYTARABINE [Suspect]
     Active Substance: CYTARABINE
     Dosage: 3 G/M2, BID (2/DAY) AT D1, D2, D8, D9
     Route: 065
  53. CYTARABINE [Suspect]
     Active Substance: CYTARABINE
     Dosage: 2 G/M2, QD (1/DAY) FROM D2 TO D6
     Route: 065
  54. CYTARABINE [Suspect]
     Active Substance: CYTARABINE
     Dosage: 3 G/M2, BID (2/DAY)
     Route: 065
  55. CYTARABINE [Suspect]
     Active Substance: CYTARABINE
     Dosage: 2 G/M2, QD (1/DAY) FROM D2 TO D6
     Route: 065
  56. CYTARABINE [Suspect]
     Active Substance: CYTARABINE
     Dosage: 2 G/M2, QD (1/DAY) FROM D2 TO D6
     Route: 065
  57. CYTARABINE [Suspect]
     Active Substance: CYTARABINE
     Dosage: 2 G/M2, QD (1/DAY) FROM D2 TO D6
     Route: 065
  58. CYTARABINE [Suspect]
     Active Substance: CYTARABINE
     Dosage: 3 G/M2, BID (2/DAY) AT D1, D2, D8, D9
     Route: 065
  59. CYTARABINE [Suspect]
     Active Substance: CYTARABINE
     Dosage: 2 G/M2, QD (1/DAY) FROM D2 TO D6
     Route: 065
  60. CYTARABINE [Suspect]
     Active Substance: CYTARABINE
     Dosage: 3 G/M2, BID (2/DAY)
     Route: 065
  61. CYTARABINE [Suspect]
     Active Substance: CYTARABINE
     Dosage: 3 G/M2, BID (2/DAY)
     Route: 065
  62. CYTARABINE [Suspect]
     Active Substance: CYTARABINE
     Dosage: 3 G/M2, BID (2/DAY)
     Route: 065
  63. CYTARABINE [Suspect]
     Active Substance: CYTARABINE
     Dosage: 2 G/M2, QD (1/DAY) FROM D2 TO D6
     Route: 065
  64. CYTARABINE [Suspect]
     Active Substance: CYTARABINE
     Dosage: 3 G/M2, BID (2/DAY) AT D1, D2, D8, D9
     Route: 065
  65. CYTARABINE [Suspect]
     Active Substance: CYTARABINE
     Dosage: 3 G/M2, BID (2/DAY) AT D1, D2, D8, D9
     Route: 065
  66. CYTARABINE [Suspect]
     Active Substance: CYTARABINE
     Dosage: 2 G/M2, QD (1/DAY) FROM D2 TO D6
     Route: 065
  67. CYTARABINE [Suspect]
     Active Substance: CYTARABINE
     Dosage: 2 G/M2, QD (1/DAY) FROM D2 TO D6
     Route: 065
  68. AMSACRINE [Suspect]
     Active Substance: AMSACRINE
     Indication: Acute myeloid leukaemia
     Dosage: 100 MG/M2, Q12H (2/DAY)
     Route: 065
  69. AMSACRINE [Suspect]
     Active Substance: AMSACRINE
     Dosage: 100 MG/M2 X 2/DAY, CYCLIC
     Route: 065
  70. AMSACRINE [Suspect]
     Active Substance: AMSACRINE
     Dosage: 200 MG/M2 (100 MILLIGRAM/SQ. METER, BID)
     Route: 065
  71. AMSACRINE [Suspect]
     Active Substance: AMSACRINE
     Dosage: 100 MG/M2, BID (2/DAY)
     Route: 065
  72. NOVANTRONE [Suspect]
     Active Substance: MITOXANTRONE HYDROCHLORIDE
     Indication: Acute myeloid leukaemia
     Dosage: 10 MG/M2, QD CYCLIC
     Route: 065
  73. NOVANTRONE [Suspect]
     Active Substance: MITOXANTRONE HYDROCHLORIDE
     Dosage: 10 MG/M2, QD (1/DAY)
     Route: 065
  74. DAUNORUBICIN [Suspect]
     Active Substance: DAUNORUBICIN
     Indication: Acute myeloid leukaemia
     Dosage: 40 MG/M2, QD, CYCLIC
     Route: 065
  75. DAUNORUBICIN [Suspect]
     Active Substance: DAUNORUBICIN
     Dosage: 40MG/M2,ONCE IN1DAY
     Route: 065
  76. LENOGRASTIM [Suspect]
     Active Substance: LENOGRASTIM
     Indication: Acute myeloid leukaemia
     Dosage: FROM D1 TO D6
     Route: 065
  77. ZOVIRAX [Suspect]
     Active Substance: ACYCLOVIR
     Indication: Product used for unknown indication
     Dosage: UNK, ANTI VIRAL
     Route: 065
  78. PROGRAF [Suspect]
     Active Substance: TACROLIMUS
     Indication: Graft versus host disease
     Dosage: 0.5 MG, EVERY OTHER DAY
     Route: 048
     Dates: start: 200906, end: 20101014
  79. PROGRAF [Suspect]
     Active Substance: TACROLIMUS
     Indication: Immunosuppressant drug therapy
  80. ASPARAGINASE [Suspect]
     Active Substance: ASPARAGINASE
     Indication: Acute myeloid leukaemia
     Dosage: 6000 U/M2/DAY D2, D9
     Route: 065
  81. GRANULOCYTE COLONY-STIMULATING FACTOR NOS [Suspect]
     Active Substance: GRANULOCYTE COLONY-STIMULATING FACTOR NOS
     Indication: Acute myeloid leukaemia
     Dosage: FROM D1 TO D6
     Route: 065
  82. AMPHOTERICIN B [Concomitant]
     Active Substance: AMPHOTERICIN B
     Indication: Product used for unknown indication
     Dosage: UNK
     Route: 065
  83. VORICONAZOLE [Concomitant]
     Active Substance: VORICONAZOLE
     Indication: Product used for unknown indication
     Dosage: UNK
     Route: 065
  84. CASPOFUNGIN [Concomitant]
     Active Substance: CASPOFUNGIN
     Indication: Product used for unknown indication
     Dosage: UNK
     Route: 065
  85. ACYCLOVIR [Concomitant]
     Active Substance: ACYCLOVIR
     Indication: Product used for unknown indication
     Dosage: UNK
     Route: 065
  86. BETAMETHASONE SODIUM PHOSPHATE [Concomitant]
     Active Substance: BETAMETHASONE SODIUM PHOSPHATE
     Indication: Product used for unknown indication
     Dosage: UNK
     Route: 065
  87. TOLNAFTATE [Concomitant]
     Active Substance: TOLNAFTATE
     Indication: Product used for unknown indication
     Dosage: UNK
     Route: 065

REACTIONS (12)
  - Bronchopulmonary aspergillosis [Recovered/Resolved]
  - Mucormycosis [Recovered/Resolved]
  - Acute graft versus host disease in intestine [Unknown]
  - Acute graft versus host disease in skin [Unknown]
  - Chronic graft versus host disease [Unknown]
  - Tooth hypoplasia [Not Recovered/Not Resolved]
  - Gastrointestinal disorder [Unknown]
  - Skin lesion [Unknown]
  - Enamel anomaly [Unknown]
  - Tooth disorder [Unknown]
  - Product use in unapproved indication [Unknown]
  - Off label use [Unknown]
